FAERS Safety Report 7405164-3 (Version None)
Quarter: 2011Q2

REPORT INFORMATION
  Report Type: 
  Country: None (occurrence: None)
  Receive Date: 20110411
  Receipt Date: 20110318
  Transmission Date: 20111010
  Serious: No
  Sender: FDA-Public Use
  Company Number: US-B.I. PHARMACEUTICALS,INC./RIDGEFIELD-2011-BP-09063BP

PATIENT
  Age: 81 Year
  Sex: Male

DRUGS (5)
  1. LASIX [Concomitant]
     Indication: BENIGN PROSTATIC HYPERPLASIA
  2. COMTAN [Concomitant]
     Indication: PARKINSON'S DISEASE
  3. ZELAPAR [Concomitant]
     Indication: PARKINSON'S DISEASE
  4. FLOMAX [Suspect]
     Indication: BENIGN PROSTATIC HYPERPLASIA
     Dosage: 0.8 MG
     Route: 048
     Dates: start: 20090101
  5. CARBIDOPA AND LEVODOPA [Concomitant]
     Indication: PARKINSON'S DISEASE

REACTIONS (5)
  - VISUAL IMPAIRMENT [None]
  - BLOOD PRESSURE DECREASED [None]
  - PHOSPHENES [None]
  - HEART RATE DECREASED [None]
  - VISION BLURRED [None]
